FAERS Safety Report 9061315 (Version 1)
Quarter: 2013Q1

REPORT INFORMATION
  Report Type: Spontaneous
  Country: US (occurrence: None)
  Receive Date: 20130208
  Receipt Date: 20130208
  Transmission Date: 20140127
  Serious: Yes (Death)
  Sender: FDA-Public Use
  Company Number: None

PATIENT
  Age: 69 Year
  Sex: Female

DRUGS (5)
  1. LETAIRIS [Suspect]
     Indication: PULMONARY HYPERTENSION
     Route: 048
     Dates: start: 201201, end: 201212
  2. AMLODIPINE [Concomitant]
  3. ADCIRCA [Concomitant]
  4. FLUTICASONE INHALED [Concomitant]
  5. GLUCOSAMINE [Concomitant]

REACTIONS (6)
  - Dyspnoea [None]
  - Metastasis [None]
  - Lung neoplasm [None]
  - Lymphadenopathy mediastinal [None]
  - Pleural effusion [None]
  - Oxygen saturation decreased [None]
